FAERS Safety Report 18919559 (Version 1)
Quarter: 2021Q1

REPORT INFORMATION
  Report Type: Spontaneous
  Country: CA (occurrence: CA)
  Receive Date: 20210221
  Receipt Date: 20210221
  Transmission Date: 20210420
  Serious: Yes (Hospitalization)
  Sender: FDA-Public Use
  Company Number: CA-ROCHE-2772503

PATIENT
  Age: 65 Year
  Sex: Male
  Weight: 95 kg

DRUGS (13)
  1. LORAZEPAM. [Concomitant]
     Active Substance: LORAZEPAM
  2. M?CAL [Concomitant]
  3. DEXAMETHASONE. [Concomitant]
     Active Substance: DEXAMETHASONE
     Route: 065
  4. CITRATE [Concomitant]
     Active Substance: CITRIC ACID MONOHYDRATE
  5. VITAMIN D [ERGOCALCIFEROL] [Concomitant]
     Active Substance: ERGOCALCIFEROL
  6. MIRTAZAPINE. [Concomitant]
     Active Substance: MIRTAZAPINE
  7. XELODA [Suspect]
     Active Substance: CAPECITABINE
     Indication: ADENOCARCINOMA OF COLON
     Route: 065
  8. BEVACIZUMAB. [Suspect]
     Active Substance: BEVACIZUMAB
     Indication: ADENOCARCINOMA OF COLON
     Route: 042
  9. ONDANSETRON [Concomitant]
     Active Substance: ONDANSETRON
  10. MEXITIL [Concomitant]
     Active Substance: MEXILETINE HYDROCHLORIDE
  11. OXALIPLATIN. [Concomitant]
     Active Substance: OXALIPLATIN
  12. PANTOPRAZOLE [Concomitant]
     Active Substance: PANTOPRAZOLE
  13. PREGABALIN. [Concomitant]
     Active Substance: PREGABALIN

REACTIONS (4)
  - Septic shock [Unknown]
  - Colitis [Unknown]
  - Hypovolaemic shock [Unknown]
  - Enteritis [Unknown]
